FAERS Safety Report 4924693-5 (Version None)
Quarter: 2006Q1

REPORT INFORMATION
  Report Type: 
  Country: None (occurrence: None)
  Receive Date: 20060222
  Receipt Date: 20060221
  Transmission Date: 20060701
  Serious: Yes (Death)
  Sender: FDA-Public Use
  Company Number: 600125410/PHRM2006FRO0661

PATIENT
  Age: 74 Year
  Sex: Male

DRUGS (10)
  1. AK-FLUOR, 10%, AKORN [Suspect]
     Indication: ANGIOGRAM
     Dosage: INTRAVENOUS
     Route: 042
     Dates: start: 20060131, end: 20060131
  2. IRBESARTAN [Concomitant]
  3. DIAMICRON (GLICLAZIDE) [Concomitant]
  4. PLAVIX [Concomitant]
  5. GLUCOPHAGE [Concomitant]
  6. AMLODIPINE BESYLATE [Concomitant]
  7. CORDARONE [Concomitant]
  8. ESIDREX (HCTZ) [Concomitant]
  9. PRAVASTATIN [Concomitant]
  10. EFFERALGAN CODEINE (CODEINE PHOSPHATE) [Concomitant]

REACTIONS (3)
  - HYPERGLYCAEMIA [None]
  - HYPERHIDROSIS [None]
  - SUDDEN DEATH [None]
